FAERS Safety Report 4681952-1 (Version None)
Quarter: 2005Q2

REPORT INFORMATION
  Report Type: 
  Country: None (occurrence: None)
  Receive Date: 20050602
  Receipt Date: 20050525
  Transmission Date: 20051028
  Serious: Yes (Death)
  Sender: FDA-Public Use
  Company Number: HQWYE998627MAY05

PATIENT
  Age: 81 Year
  Sex: Male

DRUGS (1)
  1. MINOMYCIN (MINOCYCLINE, TABLET) [Suspect]
     Dosage: ORAL
     Route: 048
     Dates: start: 20011101

REACTIONS (1)
  - INTERSTITIAL LUNG DISEASE [None]
